FAERS Safety Report 5354708-4 (Version None)
Quarter: 2007Q2

REPORT INFORMATION
  Report Type: 
  Country: None (occurrence: None)
  Receive Date: 20070611
  Receipt Date: 20070601
  Transmission Date: 20071010
  Serious: Yes (Other)
  Sender: FDA-Public Use
  Company Number: TPG2007A00297

PATIENT
  Age: 53 Year
  Sex: Female

DRUGS (3)
  1. ACTOS [Suspect]
     Indication: INSULIN-REQUIRING TYPE II DIABETES MELLITUS
     Dosage: 15 MG (15 MG, 0.5 TABLET EACH DAY), PER ORAL
     Route: 048
  2. LIPROLOG (INSULIN LISPRO) [Concomitant]
  3. DENTISOLON (CORTICOSTEROIDS, DERMATOLOGICAL PREPARATIONS) [Concomitant]

REACTIONS (8)
  - DERMATITIS BULLOUS [None]
  - DIZZINESS [None]
  - ERYTHEMA [None]
  - FLUSHING [None]
  - HEADACHE [None]
  - NAUSEA [None]
  - SWELLING FACE [None]
  - VISUAL DISTURBANCE [None]
